FAERS Safety Report 17923063 (Version 8)
Quarter: 2021Q1

REPORT INFORMATION
  Report Type: Report from Study
  Country: US (occurrence: US)
  Receive Date: 20200622
  Receipt Date: 20210120
  Transmission Date: 20210419
  Serious: Yes (Other)
  Sender: FDA-Public Use
  Company Number: US-GLAXOSMITHKLINE-US2020AMR090772

PATIENT
  Sex: Female

DRUGS (8)
  1. NIRAPARIB [Suspect]
     Active Substance: NIRAPARIB
     Indication: MALIGNANT PERITONEAL NEOPLASM
     Dosage: 300 MG, QD
     Dates: start: 20200527
  2. NIRAPARIB [Suspect]
     Active Substance: NIRAPARIB
     Dosage: 200 MG, QD
  3. NIRAPARIB [Suspect]
     Active Substance: NIRAPARIB
     Indication: OVARIAN CANCER
     Dosage: 300 MG DAILY
     Dates: start: 20200515
  4. METHOTREXATE. [Concomitant]
     Active Substance: METHOTREXATE
     Indication: RHEUMATOID ARTHRITIS
     Dosage: UNK
  5. NIRAPARIB [Suspect]
     Active Substance: NIRAPARIB
     Dosage: 200 MG, QD
     Dates: start: 20200910
  6. NIRAPARIB [Suspect]
     Active Substance: NIRAPARIB
     Dosage: 200 MG, QD
  7. NIRAPARIB [Suspect]
     Active Substance: NIRAPARIB
     Dosage: 300 MG, QD
     Dates: start: 20200527, end: 20200813
  8. NIRAPARIB [Suspect]
     Active Substance: NIRAPARIB
     Dosage: 300 MG, QD
     Dates: start: 20210111

REACTIONS (15)
  - Rheumatoid arthritis [Recovering/Resolving]
  - Anaemia [Unknown]
  - Platelet count decreased [Unknown]
  - Constipation [Unknown]
  - Product dose omission issue [Unknown]
  - Asthenia [Unknown]
  - Joint stiffness [Unknown]
  - Thrombocytopenia [Unknown]
  - Memory impairment [Unknown]
  - Insomnia [Recovered/Resolved]
  - Condition aggravated [Unknown]
  - Stomatitis [Unknown]
  - Headache [Not Recovered/Not Resolved]
  - Oral pain [Unknown]
  - Nausea [Recovering/Resolving]
